FAERS Safety Report 7691433-9 (Version None)
Quarter: 2011Q3

REPORT INFORMATION
  Report Type: 
  Country: None (occurrence: None)
  Receive Date: 20110818
  Receipt Date: 20110815
  Transmission Date: 20111222
  Serious: Yes (Death, Other)
  Sender: FDA-Public Use
  Company Number: PHHY2011US56529

PATIENT
  Sex: Female

DRUGS (3)
  1. EXJADE [Suspect]
     Dosage: 500 MG, BID
  2. EXJADE [Suspect]
     Dosage: 500 MG, PER DAY
     Route: 048
  3. EXJADE [Suspect]
     Dosage: 1000 MG, QD
     Route: 048

REACTIONS (3)
  - HAEMOGLOBIN DECREASED [None]
  - UNEVALUABLE EVENT [None]
  - DEATH [None]
